FAERS Safety Report 5948638-4 (Version None)
Quarter: 2008Q4

REPORT INFORMATION
  Report Type: 
  Country: None (occurrence: None)
  Receive Date: 20081111
  Receipt Date: 20081106
  Transmission Date: 20090506
  Serious: Yes (Disabling)
  Sender: FDA-Public Use
  Company Number: US-MERCK-0811USA00933

PATIENT
  Age: 67 Year
  Sex: Male

DRUGS (6)
  1. JANUVIA [Suspect]
     Indication: TYPE 2 DIABETES MELLITUS
     Route: 048
     Dates: start: 20081002, end: 20081103
  2. PRINZIDE [Concomitant]
     Route: 048
  3. PRAVASTATIN SODIUM [Concomitant]
     Route: 065
  4. LANTUS [Concomitant]
     Route: 065
  5. NOVOLOG [Concomitant]
     Route: 065
  6. DICLOFENAC [Concomitant]
     Route: 065

REACTIONS (2)
  - HEPATIC ENZYME INCREASED [None]
  - JAUNDICE [None]
